FAERS Safety Report 20193031 (Version 2)
Quarter: 2025Q3

REPORT INFORMATION
  Report Type: Spontaneous
  Country: EU (occurrence: EU)
  Receive Date: 20211216
  Receipt Date: 20250714
  Transmission Date: 20251020
  Serious: Yes (Death, Hospitalization)
  Sender: TEVA
  Company Number: None

PATIENT
  Age: 80 Year
  Sex: Male

DRUGS (18)
  1. TRAMADOL [Interacting]
     Active Substance: TRAMADOL
     Indication: Pain
     Route: 065
     Dates: start: 20210328
  2. Behepan [Concomitant]
     Indication: Product used for unknown indication
     Route: 065
  3. AMLODIPINE [Concomitant]
     Active Substance: AMLODIPINE BESYLATE
     Indication: Product used for unknown indication
     Route: 065
  4. ALLOPURINOL [Concomitant]
     Active Substance: ALLOPURINOL
     Indication: Product used for unknown indication
     Route: 065
  5. EZETIMIBE [Concomitant]
     Active Substance: EZETIMIBE
     Indication: Product used for unknown indication
     Route: 065
  6. PLAVIX [Concomitant]
     Active Substance: CLOPIDOGREL BISULFATE
     Indication: Product used for unknown indication
     Route: 065
  7. BACTRIM [Concomitant]
     Active Substance: SULFAMETHOXAZOLE\TRIMETHOPRIM
     Indication: Product used for unknown indication
     Route: 065
  8. NEURONTIN [Interacting]
     Active Substance: GABAPENTIN
     Indication: Pain
     Dosage: DOSE TITRATED UP TO 300 MGX3
     Route: 065
     Dates: start: 20210403
  9. Renitec [Concomitant]
     Indication: Product used for unknown indication
     Route: 065
  10. CARVEDILOL [Concomitant]
     Active Substance: CARVEDILOL
     Indication: Product used for unknown indication
     Route: 065
  11. MOXONIDINE [Concomitant]
     Active Substance: MOXONIDINE
     Indication: Product used for unknown indication
     Route: 065
  12. AZITHROMYCIN ANHYDROUS [Concomitant]
     Active Substance: AZITHROMYCIN ANHYDROUS
     Indication: Product used for unknown indication
     Route: 065
  13. Paralgin Forte [Concomitant]
     Indication: Product used for unknown indication
     Route: 065
  14. DUTASTERIDE\TAMSULOSIN [Concomitant]
     Active Substance: DUTASTERIDE\TAMSULOSIN
     Indication: Product used for unknown indication
     Route: 065
  15. ACETAMINOPHEN [Concomitant]
     Active Substance: ACETAMINOPHEN
     Indication: Product used for unknown indication
     Route: 065
  16. COMIRNATY (TOZINAMERAN) [Suspect]
     Active Substance: TOZINAMERAN
     Indication: Immunisation
     Route: 065
     Dates: start: 20210324
  17. Furix [Concomitant]
     Indication: Product used for unknown indication
     Route: 065
  18. MIRABEGRON [Concomitant]
     Active Substance: MIRABEGRON
     Indication: Product used for unknown indication
     Route: 065

REACTIONS (9)
  - Polyneuropathy [Fatal]
  - Pain [Fatal]
  - Poisoning [Fatal]
  - Drug interaction [Fatal]
  - Renal failure [Fatal]
  - Spinal stenosis [Fatal]
  - Cardiac arrest [Fatal]
  - Myopathy [Fatal]
  - Muscular weakness [Fatal]

NARRATIVE: CASE EVENT DATE: 20210328
